FAERS Safety Report 21124610 (Version 1)
Quarter: 2022Q3

REPORT INFORMATION
  Report Type: Spontaneous
  Country: US (occurrence: US)
  Receive Date: 20220725
  Receipt Date: 20220725
  Transmission Date: 20221026
  Serious: No
  Sender: FDA-Public Use
  Company Number: US-GLAXOSMITHKLINE-USCH2022025474

PATIENT
  Age: 66 Year
  Sex: Female

DRUGS (1)
  1. ALLI [Suspect]
     Active Substance: ORLISTAT
     Indication: Weight control
     Dosage: 36 G (A DAY)
     Dates: start: 20220701

REACTIONS (5)
  - Abdominal distension [Unknown]
  - Swelling [Unknown]
  - Constipation [Unknown]
  - Overdose [Unknown]
  - Drug ineffective [Unknown]
